FAERS Safety Report 19389275 (Version 2)
Quarter: 2021Q2

REPORT INFORMATION
  Report Type: Report from Study
  Country: US (occurrence: US)
  Receive Date: 20210607
  Receipt Date: 20210608
  Transmission Date: 20210717
  Serious: Yes (Hospitalization)
  Sender: FDA-Public Use
  Company Number: US-JNJFOC-20210608405

PATIENT
  Age: 27 Year
  Sex: Male
  Weight: 113.5 kg

DRUGS (1)
  1. INFLIXIMAB, RECOMBINANT [Suspect]
     Active Substance: INFLIXIMAB
     Indication: INFLAMMATORY BOWEL DISEASE
     Route: 042
     Dates: start: 20050107, end: 20051207

REACTIONS (1)
  - Abdominal abscess [Recovered/Resolved with Sequelae]

NARRATIVE: CASE EVENT DATE: 20210421
